FAERS Safety Report 6027223-2 (Version None)
Quarter: 2009Q1

REPORT INFORMATION
  Report Type: 
  Country: None (occurrence: None)
  Receive Date: 20090105
  Receipt Date: 20081223
  Transmission Date: 20090719
  Serious: Yes (Hospitalization)
  Sender: FDA-Public Use
  Company Number: US-ELI_LILLY_AND_COMPANY-US200812000401

PATIENT
  Sex: Female
  Weight: 49.433 kg

DRUGS (10)
  1. HUMALOG [Suspect]
     Indication: DIABETES MELLITUS
     Dosage: 8 U, AS NEEDED
  2. LEVEMIR [Concomitant]
     Dosage: 5 U, 2/D
  3. MORPHINE [Concomitant]
     Dates: start: 19980101
  4. COUMADIN [Concomitant]
     Indication: HEART VALVE REPLACEMENT
     Route: 048
  5. MS CONTIN [Concomitant]
     Indication: PAIN
     Route: 048
  6. ZYVOX [Concomitant]
     Indication: SEPSIS
     Route: 042
  7. ZOSYN [Concomitant]
     Indication: SEPSIS
     Route: 042
  8. TOBRAMYCIN [Concomitant]
     Indication: SEPSIS
     Route: 042
  9. ALBUTEROL [Concomitant]
     Route: 055
  10. PHENOBARBITAL TAB [Concomitant]
     Indication: CONVULSION
     Route: 048

REACTIONS (6)
  - BLOOD GLUCOSE DECREASED [None]
  - BLOOD GLUCOSE INCREASED [None]
  - HYPERSENSITIVITY [None]
  - MULTIPLE SCLEROSIS [None]
  - PLEURAL EFFUSION [None]
  - PNEUMONIA [None]
